FAERS Safety Report 20690775 (Version 1)
Quarter: 2022Q2

REPORT INFORMATION
  Report Type: Spontaneous
  Country: GB (occurrence: None)
  Receive Date: 20220408
  Receipt Date: 20220408
  Transmission Date: 20220721
  Serious: Yes (Other)
  Sender: FDA-Public Use
  Company Number: 2022A136255

PATIENT
  Age: 71 Year
  Sex: Male
  Weight: 90 kg

DRUGS (13)
  1. ACLIDINIUM BROMIDE\FORMOTEROL FUMARATE [Suspect]
     Active Substance: ACLIDINIUM BROMIDE\FORMOTEROL FUMARATE
     Indication: Chronic obstructive pulmonary disease
     Dosage: 340MCG/DOSE / 12MCG/DOSE
     Route: 055
     Dates: start: 20220321
  2. AMLODIPINE [Concomitant]
     Active Substance: AMLODIPINE BESYLATE
     Dates: start: 20211109
  3. BENDROFLUMETHIAZIDE [Concomitant]
     Active Substance: BENDROFLUMETHIAZIDE
     Dosage: 1 EVERY MORNING
     Dates: start: 20211109
  4. CARBOCYSTEINE [Concomitant]
     Active Substance: CARBOCYSTEINE
     Indication: Sputum retention
     Dosage: 2 TO LOOSEN SPUTUM
     Dates: start: 20211109
  5. DERMOL [Concomitant]
     Active Substance: BENZALKONIUM CHLORIDE\CHLORHEXIDINE HYDROCHLORIDE\ISOPROPYL MYRISTATE\PARAFFIN
     Dosage: USE AS DIRECTED
     Dates: start: 20211109
  6. DOXYCYCLINE [Concomitant]
     Active Substance: DOXYCYCLINE
     Dosage: 1 TO EXTEND COURSE
     Dates: start: 20220228, end: 20220305
  7. KELHALE [Concomitant]
     Indication: Asthma
     Dosage: TO PREVENT ASTHMA. ...
     Route: 055
     Dates: start: 20211109
  8. LATANOPROST [Concomitant]
     Active Substance: LATANOPROST
     Dosage: 1 IN EVENING
     Dates: start: 20211109
  9. NAPROXEN [Concomitant]
     Active Substance: NAPROXEN
     Dosage: 1
     Dates: start: 20211109
  10. ACETAMINOPHEN [Concomitant]
     Active Substance: ACETAMINOPHEN
     Dosage: TAKE 1 OR 2 UP TO 4 TIMES/DAY
     Dates: start: 20211109
  11. PREDNISOLONE [Concomitant]
     Active Substance: PREDNISOLONE
     Dosage: 6 RESCUE MEDICATION
     Dates: start: 20220223, end: 20220301
  12. RAMIPRIL [Concomitant]
     Active Substance: RAMIPRIL
     Dosage: 1 ONE TO BE TAKEN DAILY
     Dates: start: 20211109
  13. VENTOLIN [Concomitant]
     Active Substance: ALBUTEROL SULFATE
     Dosage: 2 AS REQUIRED
     Route: 055
     Dates: start: 20211109

REACTIONS (2)
  - Skin reaction [Unknown]
  - Skin ulcer [Unknown]

NARRATIVE: CASE EVENT DATE: 20220330
